FAERS Safety Report 24167012 (Version 1)
Quarter: 2024Q3

REPORT INFORMATION
  Report Type: Report from Study
  Country: ZA (occurrence: ZA)
  Receive Date: 20240802
  Receipt Date: 20240802
  Transmission Date: 20241017
  Serious: Yes (Other)
  Sender: ROCHE
  Company Number: ZA-ROCHE-10000038735

PATIENT
  Sex: Female

DRUGS (1)
  1. OCREVUS [Suspect]
     Active Substance: OCRELIZUMAB
     Indication: Relapsing-remitting multiple sclerosis
     Dosage: THEREAFTER 600MG EVERY 6 MONTHS
     Route: 042
     Dates: start: 20220922

REACTIONS (7)
  - Expanded disability status scale score increased [Unknown]
  - Visual acuity reduced [Unknown]
  - Muscular weakness [Unknown]
  - Sensory disturbance [Unknown]
  - Gait disturbance [Unknown]
  - Cognitive disorder [Unknown]
  - Anxiety [Unknown]
